FAERS Safety Report 4999661-8 (Version None)
Quarter: 2006Q2

REPORT INFORMATION
  Report Type: 
  Country: None (occurrence: None)
  Receive Date: 20060511
  Receipt Date: 20050715
  Transmission Date: 20061013
  Serious: Yes (Hospitalization)
  Sender: FDA-Public Use
  Company Number: US-MERCK-0507USA02110

PATIENT
  Age: 86 Year
  Sex: Female
  Weight: 59 kg

DRUGS (4)
  1. VIOXX [Suspect]
     Indication: OSTEOARTHRITIS
     Route: 048
     Dates: start: 20000229, end: 20000701
  2. VIOXX [Suspect]
     Route: 048
     Dates: start: 20000629, end: 20000701
  3. VIOXX [Suspect]
     Indication: ARTHRITIS
     Route: 048
     Dates: start: 20000229, end: 20000701
  4. VIOXX [Suspect]
     Route: 048
     Dates: start: 20000629, end: 20000701

REACTIONS (13)
  - ATRIAL FIBRILLATION [None]
  - BLOOD PRESSURE DECREASED [None]
  - CEREBRAL HAEMORRHAGE [None]
  - CEREBROVASCULAR ACCIDENT [None]
  - DIARRHOEA HAEMORRHAGIC [None]
  - FAECES DISCOLOURED [None]
  - PERITONSILLAR ABSCESS [None]
  - PHARYNGITIS [None]
  - POSTNASAL DRIP [None]
  - SYNCOPE [None]
  - UPPER LIMB FRACTURE [None]
  - URINARY TRACT INFECTION [None]
  - VOMITING [None]
